FAERS Safety Report 7751965-1 (Version None)
Quarter: 2011Q3

REPORT INFORMATION
  Report Type: 
  Country: None (occurrence: None)
  Receive Date: 20110912
  Receipt Date: 20110902
  Transmission Date: 20111222
  Serious: No
  Sender: FDA-Public Use
  Company Number: 2011-01286

PATIENT
  Age: 60 Year
  Sex: Female
  Weight: 61.2356 kg

DRUGS (7)
  1. ZICAM COLD REMEDY PLUS ORAL MIST [Suspect]
     Dosage: EVERY 3-5 HRS, 4-5 DOSES
     Dates: start: 20110901, end: 20110901
  2. FISH OIL [Concomitant]
  3. FRESH KOTE [Concomitant]
  4. VITAMIN C, D, E + B-COMPLEX [Concomitant]
  5. CALCIUM CARBONATE [Concomitant]
  6. PROGESTERONE CREAM-TOPICAL [Concomitant]
  7. MULTI-VITAMIN [Concomitant]

REACTIONS (1)
  - HYPOGEUSIA [None]
